FAERS Safety Report 12263150 (Version 1)
Quarter: 2016Q2

REPORT INFORMATION
  Report Type: Spontaneous
  Country: JP (occurrence: JP)
  Receive Date: 20160413
  Receipt Date: 20160413
  Transmission Date: 20160815
  Serious: Yes (Other)
  Sender: FDA-Public Use
  Company Number: JP-SA-2016SA069042

PATIENT
  Age: 22 Year
  Sex: Female

DRUGS (8)
  1. CEFZON [Concomitant]
     Active Substance: CEFDINIR
     Indication: OTITIS EXTERNA
     Route: 065
     Dates: start: 20160302, end: 20160303
  2. DELLEGRA [Suspect]
     Active Substance: FEXOFENADINE HYDROCHLORIDE\PSEUDOEPHEDRINE HYDROCHLORIDE
     Indication: RHINITIS ALLERGIC
     Route: 048
     Dates: start: 20160303, end: 20160307
  3. KALLIDINOGENASE [Concomitant]
     Active Substance: KALLIDINOGENASE
     Indication: OTITIS EXTERNA
     Route: 065
     Dates: start: 20160302, end: 20160303
  4. PATANOL [Concomitant]
     Active Substance: OLOPATADINE HYDROCHLORIDE
     Indication: RHINITIS ALLERGIC
     Dosage: STOP DATE: MAR-2016
     Route: 047
     Dates: start: 20160303
  5. NASONEX [Concomitant]
     Active Substance: MOMETASONE FUROATE
     Indication: RHINITIS ALLERGIC
     Dosage: STOPR DATE: MAR-2016
     Route: 045
     Dates: start: 20160303
  6. PONSTEL [Concomitant]
     Active Substance: MEFENAMIC ACID
     Dosage: STOP DATE: MAR-2016
     Route: 065
     Dates: start: 20160303
  7. BIOFERMIN R [Concomitant]
     Active Substance: BACILLUS SUBTILIS\LACTOBACILLUS ACIDOPHILUS\STREPTOCOCCUS FAECAIS
     Indication: OTITIS EXTERNA
     Route: 065
     Dates: start: 20160302, end: 20160303
  8. DIFENIDOL [Concomitant]
     Indication: OTITIS EXTERNA
     Route: 065
     Dates: start: 20160302, end: 20160303

REACTIONS (1)
  - Dermatitis exfoliative [Recovered/Resolved]

NARRATIVE: CASE EVENT DATE: 20160304
